FAERS Safety Report 8200380-5 (Version None)
Quarter: 2012Q1

REPORT INFORMATION
  Report Type: 
  Country: None (occurrence: None)
  Receive Date: 20120312
  Receipt Date: 20120305
  Transmission Date: 20120608
  Serious: Yes (Life-Threatening, Hospitalization, Other)
  Sender: FDA-Public Use
  Company Number: CO-US-EMD SERONO, INC.-7117250

PATIENT
  Sex: Male

DRUGS (1)
  1. SAIZEN [Suspect]
     Indication: GROWTH HORMONE DEFICIENCY
     Route: 058
     Dates: start: 20111130, end: 20120303

REACTIONS (3)
  - GENERALISED OEDEMA [None]
  - RESPIRATORY FAILURE [None]
  - ADRENAL INSUFFICIENCY [None]
